FAERS Safety Report 7815216-1 (Version None)
Quarter: 2011Q4

REPORT INFORMATION
  Report Type: 
  Country: None (occurrence: None)
  Receive Date: 20111014
  Receipt Date: 20111007
  Transmission Date: 20120403
  Serious: Yes (Other)
  Sender: FDA-Public Use
  Company Number: US-B.I. PHARMACEUTICALS,INC./RIDGEFIELD-2011-BP-23858BP

PATIENT
  Age: 75 Year
  Sex: Female

DRUGS (8)
  1. PRADAXA [Suspect]
     Indication: ATRIAL FIBRILLATION
     Dosage: 300 MG
     Route: 048
  2. INSULIN [Concomitant]
     Indication: TYPE 2 DIABETES MELLITUS
  3. GLYBURIDE [Concomitant]
     Indication: TYPE 2 DIABETES MELLITUS
     Dosage: 5 MG
     Route: 048
     Dates: start: 20110901
  4. DILANTIN [Concomitant]
     Indication: GRAND MAL CONVULSION
  5. POTASSIUM [Concomitant]
     Indication: SUPPLEMENTATION THERAPY
     Dates: start: 20110101, end: 20110101
  6. DILTIAZEM HCL [Concomitant]
     Indication: HYPERTENSION
  7. UNSPECIFIED MEDICATION [Concomitant]
     Indication: HYPERTENSION
     Dates: end: 20110101
  8. SIMVASTATIN [Concomitant]
     Indication: BLOOD CHOLESTEROL INCREASED

REACTIONS (15)
  - CARDIAC FAILURE CONGESTIVE [None]
  - CARDIAC DISORDER [None]
  - PARAESTHESIA [None]
  - NECK PAIN [None]
  - WEIGHT DECREASED [None]
  - FACIAL PARESIS [None]
  - VISUAL ACUITY REDUCED [None]
  - ABDOMINAL PAIN UPPER [None]
  - ANTERIOR SPINAL ARTERY SYNDROME [None]
  - MUSCULOSKELETAL PAIN [None]
  - MUSCULOSKELETAL DISORDER [None]
  - EXTENSOR PLANTAR RESPONSE [None]
  - APHASIA [None]
  - FALL [None]
  - TONGUE PARALYSIS [None]
